FAERS Safety Report 7395501-0 (Version None)
Quarter: 2011Q2

REPORT INFORMATION
  Report Type: 
  Country: None (occurrence: None)
  Receive Date: 20110405
  Receipt Date: 20110215
  Transmission Date: 20111010
  Serious: No
  Sender: FDA-Public Use
  Company Number: FR-BAYER-2011-008710

PATIENT
  Sex: Female

DRUGS (1)
  1. QLAIRA [Suspect]
     Indication: PRODUCT USED FOR UNKNOWN INDICATION
     Dosage: UNK
     Route: 048
     Dates: start: 20090901

REACTIONS (3)
  - PREGNANCY [None]
  - ABDOMINAL DISTENSION [None]
  - PELVIC DISCOMFORT [None]
